FAERS Safety Report 20165459 (Version 1)
Quarter: 2021Q4

REPORT INFORMATION
  Report Type: Spontaneous
  Country: US (occurrence: None)
  Receive Date: 20211209
  Receipt Date: 20211209
  Transmission Date: 20220303
  Serious: Yes (Hospitalization, Other)
  Sender: FDA-Public Use
  Company Number: US-ROCHE-2973006

PATIENT
  Sex: Male
  Weight: 63.560 kg

DRUGS (2)
  1. RITUXAN [Suspect]
     Active Substance: RITUXIMAB
     Indication: Marginal zone lymphoma
     Dosage: FOR 4 WEEKS
     Route: 042
     Dates: start: 2013, end: 2013
  2. FULPHILA (UNITED STATES) [Concomitant]
     Indication: Neutrophil count increased
     Dosage: ONE TIME DOSE
     Route: 058
     Dates: start: 20211201, end: 20211201

REACTIONS (15)
  - Chronic lymphocytic leukaemia [Not Recovered/Not Resolved]
  - Anaemia [Unknown]
  - Blood urine present [Not Recovered/Not Resolved]
  - Night sweats [Recovered/Resolved]
  - Chills [Recovered/Resolved]
  - Pyrexia [Recovered/Resolved]
  - Lymphadenopathy [Unknown]
  - Testicular swelling [Recovered/Resolved]
  - Hypergeusia [Unknown]
  - Dyspnoea [Recovered/Resolved]
  - Febrile neutropenia [Recovered/Resolved]
  - Haemoglobin decreased [Recovering/Resolving]
  - Platelet count decreased [Recovering/Resolving]
  - Red blood cell count decreased [Recovering/Resolving]
  - Protein urine present [Not Recovered/Not Resolved]

NARRATIVE: CASE EVENT DATE: 20210101
